FAERS Safety Report 14807168 (Version 4)
Quarter: 2018Q3

REPORT INFORMATION
  Report Type: Report from Study
  Country: US (occurrence: US)
  Receive Date: 20180425
  Receipt Date: 20180816
  Transmission Date: 20181010
  Serious: Yes (Hospitalization)
  Sender: FDA-Public Use
  Company Number: US-ACTELION-A-NJ2018-171090

PATIENT
  Age: 10 Week
  Sex: Male

DRUGS (8)
  1. BETHANECHOL [Concomitant]
     Active Substance: BETHANECHOL
  2. BOSENTAN TABLET 32 MG PED US [Suspect]
     Active Substance: BOSENTAN
     Dosage: 32 MG, BID VIA G TUBE
     Route: 049
  3. RANITIDINE. [Concomitant]
     Active Substance: RANITIDINE
  4. DIURIL [Concomitant]
     Active Substance: CHLOROTHIAZIDE
  5. ALBUTEROL. [Concomitant]
     Active Substance: ALBUTEROL
  6. BOSENTAN TABLET 32 MG PED US [Suspect]
     Active Substance: BOSENTAN
     Indication: PULMONARY ARTERIAL HYPERTENSION
     Dosage: 16 MG IN 5ML WATER, QD
     Route: 048
  7. TYLENOL [Concomitant]
     Active Substance: ACETAMINOPHEN
  8. ATROVENT [Concomitant]
     Active Substance: IPRATROPIUM BROMIDE

REACTIONS (2)
  - Respiratory disorder [Recovered/Resolved]
  - Rhinovirus infection [Recovering/Resolving]

NARRATIVE: CASE EVENT DATE: 20170930
